FAERS Safety Report 8168085-7 (Version None)
Quarter: 2012Q1

REPORT INFORMATION
  Report Type: 
  Country: None (occurrence: None)
  Receive Date: 20120227
  Receipt Date: 20120214
  Transmission Date: 20120608
  Serious: Yes (Other)
  Sender: FDA-Public Use
  Company Number: PHEH2012US002294

PATIENT
  Sex: Female
  Weight: 76 kg

DRUGS (5)
  1. ASPIRIN [Concomitant]
     Dosage: 81 MG, QD
  2. LISINOPRIL [Concomitant]
     Dosage: 10 MG, QD
  3. TOPROL-XL [Concomitant]
     Dosage: UNK UKN, UNK
  4. PLAVIX [Concomitant]
     Dosage: 75 MG,
     Route: 048
  5. TASIGNA [Suspect]
     Indication: CHRONIC MYELOID LEUKAEMIA
     Dosage: 200 MG, BID
     Route: 048
     Dates: start: 20100329

REACTIONS (1)
  - CEREBROVASCULAR ACCIDENT [None]
